FAERS Safety Report 6515883-9 (Version None)
Quarter: 2009Q4

REPORT INFORMATION
  Report Type: 
  Country: None (occurrence: None)
  Receive Date: 20091211
  Receipt Date: 20091006
  Transmission Date: 20100525
  Serious: Yes (Other)
  Sender: FDA-Public Use
  Company Number: ALL1-2009-03085

PATIENT
  Age: 20 Year
  Sex: Female
  Weight: 65.8 kg

DRUGS (3)
  1. ADDERALL XR 10 [Suspect]
     Indication: ATTENTION DEFICIT/HYPERACTIVITY DISORDER
     Dosage: 30 MG, 1X/DAY:QD, ORAL
     Route: 048
     Dates: start: 20090118
  2. NUVIGIL (ARMODAFINIL) TABLET [Concomitant]
  3. GEODON /01487002/ (ZIPRASIDONE HYDROCHLORIDE) [Concomitant]

REACTIONS (3)
  - CONDITION AGGRAVATED [None]
  - PARANOIA [None]
  - WEIGHT DECREASED [None]
